FAERS Safety Report 9532181 (Version 1)
Quarter: 2013Q3

REPORT INFORMATION
  Report Type: Spontaneous
  Country: US (occurrence: US)
  Receive Date: 20130918
  Receipt Date: 20130918
  Transmission Date: 20140515
  Serious: No
  Sender: FDA-Public Use
  Company Number: US-JNJFOC-20130909932

PATIENT
  Age: 22 Year
  Sex: Male

DRUGS (1)
  1. INVEGA SUSTENNA [Suspect]
     Indication: PRODUCT USED FOR UNKNOWN INDICATION
     Dosage: SECOND DOSE WAS GIVEN 08-JUL-2013 (RESCHEDULED) AND 02-AUG-2013 WAS FIRST MAINTAINACE DOSE.
     Route: 030
     Dates: start: 20130606

REACTIONS (1)
  - Drug dose omission [Unknown]
